FAERS Safety Report 15956075 (Version 1)
Quarter: 2019Q1

REPORT INFORMATION
  Report Type: Spontaneous
  Country: US (occurrence: US)
  Receive Date: 20190213
  Receipt Date: 20190213
  Transmission Date: 20190417
  Serious: No
  Sender: FDA-Public Use
  Company Number: US-TEVA-2019-US-100065

PATIENT
  Sex: Female

DRUGS (1)
  1. MUCUS ER [Suspect]
     Active Substance: GUAIFENESIN
     Indication: TINNITUS
     Dosage: 1200 MILLIGRAM DAILY;
     Route: 048
     Dates: start: 20190108, end: 20190108

REACTIONS (4)
  - Tinnitus [Recovered/Resolved]
  - Product use in unapproved indication [Unknown]
  - Palpitations [Recovered/Resolved]
  - Tremor [Recovered/Resolved]

NARRATIVE: CASE EVENT DATE: 20190108
